FAERS Safety Report 5205952-8 (Version None)
Quarter: 2007Q1

REPORT INFORMATION
  Report Type: 
  Country: None (occurrence: None)
  Receive Date: 20070111
  Receipt Date: 20070108
  Transmission Date: 20070707
  Serious: Yes (Hospitalization)
  Sender: FDA-Public Use
  Company Number: FR-GLAXOSMITHKLINE-B0453534A

PATIENT
  Age: 84 Year
  Sex: Female
  Weight: 106 kg

DRUGS (1)
  1. AUGMENTIN '125' [Suspect]
     Indication: DERMO-HYPODERMITIS
     Route: 048
     Dates: start: 20061103, end: 20061114

REACTIONS (1)
  - CUTANEOUS VASCULITIS [None]
